FAERS Safety Report 7542147-7 (Version None)
Quarter: 2011Q2

REPORT INFORMATION
  Report Type: 
  Country: None (occurrence: None)
  Receive Date: 20110524
  Receipt Date: 20110329
  Transmission Date: 20111010
  Serious: No
  Sender: FDA-Public Use
  Company Number: 030194

PATIENT
  Sex: Male

DRUGS (1)
  1. CIMZIA [Suspect]
     Dosage: (UNKNOWN INDUCTION DOSE SUBCUTANEOUS)
     Route: 058

REACTIONS (1)
  - ACNE [None]
